FAERS Safety Report 6460069-X (Version None)
Quarter: 2009Q4

REPORT INFORMATION
  Report Type: 
  Country: None (occurrence: None)
  Receive Date: 20091129
  Receipt Date: 20091123
  Transmission Date: 20100525
  Serious: Yes (Other)
  Sender: FDA-Public Use
  Company Number: PHEH2009US15662

PATIENT
  Sex: Female

DRUGS (8)
  1. ENABLEX [Suspect]
     Indication: INCONTINENCE
     Dosage: 15 MG, DAILY
     Dates: start: 20091001, end: 20091030
  2. ENABLEX [Suspect]
     Dosage: 7.5 MG, UNK
  3. MICARDIS [Concomitant]
  4. LYRICA [Concomitant]
  5. WARFARIN SODIUM [Concomitant]
  6. DIGITEK [Concomitant]
  7. TRAMADOL HCL [Concomitant]
  8. MIRAPEX [Concomitant]

REACTIONS (4)
  - BURNING SENSATION [None]
  - DYSURIA [None]
  - LACRIMATION INCREASED [None]
  - VAGINAL HAEMORRHAGE [None]
